FAERS Safety Report 7248578-7 (Version None)
Quarter: 2011Q1

REPORT INFORMATION
  Report Type: 
  Country: None (occurrence: None)
  Receive Date: 20110128
  Receipt Date: 20101210
  Transmission Date: 20110831
  Serious: Yes (Other)
  Sender: FDA-Public Use
  Company Number: US-BAYER-2010-004586

PATIENT
  Sex: Male
  Weight: 85.714 kg

DRUGS (3)
  1. BLOOD PRESSURE MEDICATION (NOS) [Concomitant]
  2. ALEVE (CAPLET) [Suspect]
     Indication: PAIN
     Dosage: 220MG, PRN
     Dates: end: 20100901
  3. ANTI-DEMENTIA DRUGS [Concomitant]

REACTIONS (1)
  - NEPHROPATHY [None]
